FAERS Safety Report 6199123-9 (Version None)
Quarter: 2009Q2

REPORT INFORMATION
  Report Type: 
  Country: None (occurrence: None)
  Receive Date: 20090522
  Receipt Date: 20090511
  Transmission Date: 20091009
  Serious: Yes (Life-Threatening, Hospitalization, Other)
  Sender: FDA-Public Use
  Company Number: AT-ELI_LILLY_AND_COMPANY-AT200905002343

PATIENT
  Age: 45 Year
  Sex: Male
  Weight: 60 kg

DRUGS (10)
  1. ZYPREXA [Suspect]
     Dosage: 30 MG, DAILY (1/D)
     Dates: start: 20081217, end: 20090418
  2. DEPAKENE [Concomitant]
     Dosage: 1000 MG, DAILY (1/D)
     Dates: start: 20081217, end: 20090418
  3. DEPAKENE [Concomitant]
     Dosage: 1000 MG, DAILY (1/D)
     Dates: start: 20090421
  4. PANTOLOC                           /01263201/ [Concomitant]
     Dosage: 20 MG, DAILY (1/D)
     Dates: start: 20081217, end: 20090418
  5. PANTOLOC                           /01263201/ [Concomitant]
     Dosage: 40 MG, UNK
     Dates: start: 20090101
  6. ALPRAZOLAM [Concomitant]
     Dosage: 1 MG, DAILY (1/D)
     Dates: start: 20081217, end: 20090418
  7. AKINETON [Concomitant]
     Dosage: 4 MG, DAILY (1/D)
     Dates: start: 20081217, end: 20090418
  8. DOMINAL FORTE [Concomitant]
     Dosage: 80 MG, DAILY (1/D)
     Dates: start: 20081217, end: 20090418
  9. DOMINAL FORTE [Concomitant]
     Dosage: 80 MG, DAILY (1/D)
     Dates: start: 20090420
  10. LOVENOX [Concomitant]
     Dosage: 40 MG, UNK
     Dates: start: 20090418, end: 20090501

REACTIONS (7)
  - BLOOD CREATINE PHOSPHOKINASE INCREASED [None]
  - CONVULSION [None]
  - DELIRIUM [None]
  - ELECTROLYTE IMBALANCE [None]
  - OVERDOSE [None]
  - STATUS EPILEPTICUS [None]
  - URINE OUTPUT INCREASED [None]
